FAERS Safety Report 5761854-X (Version None)
Quarter: 2008Q2

REPORT INFORMATION
  Report Type: 
  Country: None (occurrence: None)
  Receive Date: 20080606
  Receipt Date: 20080529
  Transmission Date: 20081010
  Serious: Yes (Other)
  Sender: FDA-Public Use
  Company Number: IE-PFIZER INC-2008046048

PATIENT
  Age: 55 Year
  Sex: Female

DRUGS (1)
  1. LIPITOR [Suspect]
     Indication: PROPHYLAXIS
     Route: 048

REACTIONS (2)
  - DEEP VEIN THROMBOSIS [None]
  - MYALGIA [None]
